FAERS Safety Report 19738445 (Version 16)
Quarter: 2023Q2

REPORT INFORMATION
  Report Type: Report from Study
  Country: DE (occurrence: DE)
  Receive Date: 20210823
  Receipt Date: 20230519
  Transmission Date: 20230722
  Serious: Yes (Hospitalization, Other)
  Sender: FDA-Public Use
  Company Number: DE-002147023-NVSC2020DE327506

PATIENT
  Age: 58 Year
  Sex: Female
  Weight: 60 kg

DRUGS (19)
  1. LETROZOLE [Suspect]
     Active Substance: LETROZOLE
     Indication: Breast cancer metastatic
     Dosage: 2.5 MG, QD (DAILY DOSE)
     Route: 048
     Dates: start: 20201015
  2. LETROZOLE [Suspect]
     Active Substance: LETROZOLE
     Indication: Hormone receptor positive HER2 negative breast cancer
  3. KISQALI [Suspect]
     Active Substance: RIBOCICLIB
     Indication: Breast cancer metastatic
     Dosage: 400MG, SCHEME 21DAYS INTAKE, 7DAYS PAUSE
     Route: 048
  4. KISQALI [Suspect]
     Active Substance: RIBOCICLIB
     Indication: Hormone receptor positive HER2 negative breast cancer
     Dosage: 600MG (DAILY DOSE) (21 DAYS INTAKE 7 DAYS PAUSE)
     Route: 048
     Dates: start: 20201112, end: 20201202
  5. KISQALI [Suspect]
     Active Substance: RIBOCICLIB
     Dosage: 600MG (DAILY DOSE) (21 DAYS INTAKE 7 DAYS PAUSE)
     Route: 048
     Dates: start: 20210113, end: 20210601
  6. KISQALI [Suspect]
     Active Substance: RIBOCICLIB
     Dosage: 600MG QD(21 DAYS INTAKE 7 DAYS PAUSE)
     Route: 048
     Dates: start: 20210610, end: 20210804
  7. KISQALI [Suspect]
     Active Substance: RIBOCICLIB
     Dosage: 600MG QD(21 DAYS INTAKE 7 DAYS PAUSE)
     Route: 048
     Dates: start: 20210812, end: 20210908
  8. KISQALI [Suspect]
     Active Substance: RIBOCICLIB
     Dosage: 600 MG,QD (21 DAYS INTAKE 7 DAYS PAUSE)
     Route: 048
     Dates: start: 20210916, end: 20211110
  9. KISQALI [Suspect]
     Active Substance: RIBOCICLIB
     Dosage: 600 MG,QD (21 DAYS INTAKE 7 DAYS PAUSE)
     Route: 048
     Dates: start: 20211116, end: 20220110
  10. KISQALI [Suspect]
     Active Substance: RIBOCICLIB
     Dosage: 600MG,QD (21 DAYS INTAKE 7 DAYS PAUSE)
     Route: 048
     Dates: start: 20220118, end: 20220214
  11. KISQALI [Suspect]
     Active Substance: RIBOCICLIB
     Dosage: 600MG,QD(21 DAYS INTAKE 7 DAYS PAUSE)
     Route: 048
     Dates: start: 20220222, end: 20220321
  12. KISQALI [Suspect]
     Active Substance: RIBOCICLIB
     Dosage: 400 MG,QD(21 DAYS INTAKE 7 DAYS PAUSE)
     Route: 048
     Dates: start: 20220329, end: 20220425
  13. KISQALI [Suspect]
     Active Substance: RIBOCICLIB
     Dosage: 400MG,QD,(21 DAYS INTAKE 7 DAYS PAUSE)
     Route: 048
     Dates: start: 20220429, end: 20220526
  14. KISQALI [Suspect]
     Active Substance: RIBOCICLIB
     Dosage: 400MG,QD(21 DAYS INTAKE 7 DAYS PAUSE)
     Route: 048
     Dates: start: 20220603, end: 20220630
  15. KISQALI [Suspect]
     Active Substance: RIBOCICLIB
     Dosage: 400MG,QD (21 DAYS INTAKE 7 DAYS PAUSE)
     Route: 048
     Dates: start: 20220708, end: 20220901
  16. KISQALI [Suspect]
     Active Substance: RIBOCICLIB
     Dosage: 400MG,QD(21 DAYS INTAKE 7 DAYS PAUSE)
     Route: 065
     Dates: start: 20220913, end: 20221107
  17. KISQALI [Suspect]
     Active Substance: RIBOCICLIB
     Dosage: 400 MG,QD(21 DAYS INTAKE 7 DAYS PAUSE)
     Route: 048
     Dates: start: 20221115, end: 20221212
  18. KISQALI [Suspect]
     Active Substance: RIBOCICLIB
     Dosage: 400 MG,QD (21 DAYS INTAKE 7 DAYS PAUSE)
     Route: 048
     Dates: start: 20221220, end: 20230313
  19. KISQALI [Suspect]
     Active Substance: RIBOCICLIB
     Dosage: 400 MG,QD(21 DAYS INTAKE 7 DAYS PAUSE)
     Route: 048
     Dates: start: 20230321

REACTIONS (10)
  - Hip fracture [Recovered/Resolved]
  - Lipoma [Not Recovered/Not Resolved]
  - Sinus tachycardia [Recovering/Resolving]
  - Arthralgia [Not Recovered/Not Resolved]
  - Bone pain [Recovering/Resolving]
  - Anaemia [Recovering/Resolving]
  - Herpes zoster [Not Recovered/Not Resolved]
  - Herpes simplex [Recovered/Resolved]
  - Neutrophil count decreased [Not Recovered/Not Resolved]
  - Dry skin [Not Recovered/Not Resolved]

NARRATIVE: CASE EVENT DATE: 20201202
